FAERS Safety Report 19355692 (Version 1)
Quarter: 2021Q2

REPORT INFORMATION
  Report Type: Spontaneous
  Country: US (occurrence: US)
  Receive Date: 20210601
  Receipt Date: 20210601
  Transmission Date: 20210717
  Serious: Yes (Other)
  Sender: FDA-Public Use
  Company Number: US-DRREDDYS-USA/USA/21/0135996

PATIENT
  Age: 53 Year
  Sex: Female

DRUGS (13)
  1. QUETIAPINE FUMARATE TABLETS [Suspect]
     Active Substance: QUETIAPINE FUMARATE
     Indication: PRODUCT USED FOR UNKNOWN INDICATION
     Dosage: TAKEN OVER SEVERAL MONTHS
  2. ABILIFY [Suspect]
     Active Substance: ARIPIPRAZOLE
     Indication: PRODUCT USED FOR UNKNOWN INDICATION
     Dosage: 2 HRS BEFORE BED TIME
  3. QUETIAPINE FUMARATE TABLETS [Suspect]
     Active Substance: QUETIAPINE FUMARATE
     Dosage: TAKEN OVER SEVERAL MONTHS
  4. ABILIFY [Suspect]
     Active Substance: ARIPIPRAZOLE
     Dosage: 2 BOOSTERS TAKEN OVER SEVERAL MONTHS
  5. LORAZEPAM INJECTION USP, 2 MG/ML AND 4 MG/ML [Suspect]
     Active Substance: LORAZEPAM
     Indication: PRODUCT USED FOR UNKNOWN INDICATION
     Dosage: ON AND OFF AS NEEDED FOR BASIC COMFORT
  6. ABILIFY [Suspect]
     Active Substance: ARIPIPRAZOLE
  7. ZOLOFT [Suspect]
     Active Substance: SERTRALINE HYDROCHLORIDE
     Indication: DEPRESSION
  8. SERTRALINE [Suspect]
     Active Substance: SERTRALINE HYDROCHLORIDE
     Indication: PRODUCT USED FOR UNKNOWN INDICATION
  9. ZOLOFT [Suspect]
     Active Substance: SERTRALINE HYDROCHLORIDE
  10. ZOLOFT [Suspect]
     Active Substance: SERTRALINE HYDROCHLORIDE
  11. ESZOPICLONE. [Suspect]
     Active Substance: ESZOPICLONE
     Indication: INSOMNIA
     Dosage: PRESCRIBED 3 MG AT BED TIME BEFORE QUETIPINE
  12. QUETIAPINE FUMARATE TABLETS [Suspect]
     Active Substance: QUETIAPINE FUMARATE
     Dosage: TAKEN OVER SEVERAL MONTHS
  13. BUSPIRONE [Suspect]
     Active Substance: BUSPIRONE HYDROCHLORIDE
     Indication: PRODUCT USED FOR UNKNOWN INDICATION
     Route: 048

REACTIONS (13)
  - Depression [Unknown]
  - Constipation [Unknown]
  - Condition aggravated [Unknown]
  - Suicidal ideation [Unknown]
  - Product quality issue [Unknown]
  - Insomnia [Unknown]
  - Laziness [Unknown]
  - Abdominal discomfort [Unknown]
  - Crying [Unknown]
  - Fatigue [Unknown]
  - Depressed mood [Unknown]
  - Diarrhoea [Unknown]
  - Drug ineffective [Unknown]
